FAERS Safety Report 7015623 (Version 2)
Quarter: 2012Q4

REPORT INFORMATION
  Report Type: 
  Country: US (occurrence: US)
  Receive Date: 20090610
  Receipt Date: 20121109
  Transmission Date: 20130627
  Serious: Yes (Other)
  Sender: FDA-Public Use
  Company Number: US-BRISTOL-MYERS SQUIBB COMPANY-14651715

PATIENT
  Age: 56 Year
  Sex: Male

DRUGS (2)
  1. COUMADIN TABS [Suspect]
     Indication: INTERNATIONAL NORMALISED RATIO FLUCTUATION
     Dosage: 10mg strength tab-4 tabs/d.5mg strength tab-1/d ,1and1/2 tab on tues,thur,sat + sundy.
     Route: 048
     Dates: start: 200710
  2. GEMFIBROZIL [Suspect]
     Dosage: 1 dosage form = triple dose since Oct-2008
     Dates: start: 200810

REACTIONS (21)
  - Chronic obstructive pulmonary disease [Unknown]
  - Hypersensitivity [Unknown]
  - Haematuria [Unknown]
  - Haematochezia [Unknown]
  - Ear haemorrhage [Unknown]
  - Epistaxis [Unknown]
  - International normalised ratio increased [Unknown]
  - Contusion [Unknown]
  - Pain [Unknown]
  - International normalised ratio fluctuation [Unknown]
  - Melaena [Unknown]
  - Poisoning [None]
  - Sleep disorder [None]
  - Eating disorder [None]
  - Antithrombin III deficiency [None]
  - Chest pain [None]
  - Pain in extremity [None]
  - Angina pectoris [None]
  - Skin haemorrhage [None]
  - Feeling abnormal [None]
  - Drug prescribing error [None]
